FAERS Safety Report 9228560 (Version 1)
Quarter: 2013Q1

REPORT INFORMATION
  Report Type: Spontaneous
  Country: US (occurrence: None)
  Receive Date: 20121016
  Receipt Date: 20121016
  Transmission Date: 20140127
  Serious: Yes (Hospitalization)
  Sender: FDA-Public Use
  Company Number: 2011029614

PATIENT
  Age: 52 Year
  Sex: Female

DRUGS (1)
  1. PRIVIGEN (IMMUNE GLOBULIN INTRAVENOUS (HUMAN) 10% LIQUID) [Suspect]
     Indication: ANGIOPATHY
     Route: 042
     Dates: start: 20110809, end: 20110810

REACTIONS (4)
  - Meningitis aseptic [None]
  - Headache [None]
  - Nausea [None]
  - Discomfort [None]
